FAERS Safety Report 9166380 (Version 2)
Quarter: 2015Q2

REPORT INFORMATION
  Report Type: Report from Study
  Country: DE (occurrence: DE)
  Receive Date: 20130315
  Receipt Date: 20150629
  Transmission Date: 20150821
  Serious: Yes (Other)
  Sender: FDA-Public Use
  Company Number: PHHY2013DE025277

PATIENT
  Sex: Female

DRUGS (5)
  1. GILENYA [Suspect]
     Active Substance: FINGOLIMOD HYDROCHLORIDE
     Dosage: 0.5 MG, QD
     Route: 048
     Dates: start: 20110920
  2. VITAMIN D [Concomitant]
     Active Substance: CHOLECALCIFEROL
     Indication: PRODUCT USED FOR UNKNOWN INDICATION
     Dosage: 1000 IU, QD
     Route: 048
     Dates: start: 20120328
  3. GILENYA [Suspect]
     Active Substance: FINGOLIMOD HYDROCHLORIDE
     Indication: MULTIPLE SCLEROSIS
     Dosage: 0.5 MG, QD
     Route: 048
     Dates: start: 20110404, end: 20110919
  4. TETRAZEPAM [Concomitant]
     Active Substance: TETRAZEPAM
     Indication: PRODUCT USED FOR UNKNOWN INDICATION
     Dosage: 50 OT, QD
     Route: 048
     Dates: start: 20120822
  5. WOBENZYM [Concomitant]
     Active Substance: AMYLASE\BROMELAINS\CHYMOTRYPSIN\PANCRELIPASE\PAPAIN\RUTIN\TRYPSIN
     Indication: PRODUCT USED FOR UNKNOWN INDICATION
     Dosage: 600 OT, QD
     Route: 048
     Dates: start: 20120321

REACTIONS (1)
  - Glaucoma [Not Recovered/Not Resolved]

NARRATIVE: CASE EVENT DATE: 20130109
